FAERS Safety Report 7564566-5 (Version None)
Quarter: 2011Q2

REPORT INFORMATION
  Report Type: 
  Country: None (occurrence: None)
  Receive Date: 20110622
  Receipt Date: 20100706
  Transmission Date: 20111010
  Serious: Yes (Other)
  Sender: FDA-Public Use
  Company Number: US-MYLANLABS-2010S1009828

PATIENT
  Age: 22 Year
  Sex: Female
  Weight: 83.92 kg

DRUGS (14)
  1. DIVALPROEX SODIUM EXTENDED RELEASE [Concomitant]
     Route: 048
  2. SERTRALINE HYDROCHLORIDE [Concomitant]
     Route: 048
  3. ATIVAN [Concomitant]
     Route: 030
     Dates: start: 20100513, end: 20100513
  4. DOCUSATE [Concomitant]
     Route: 048
  5. PETROLATUM [Concomitant]
     Route: 061
  6. APAP TAB [Concomitant]
     Dates: start: 20100514, end: 20100514
  7. ATIVAN [Concomitant]
     Route: 030
     Dates: start: 20100525, end: 20100525
  8. NORTREL /00318901/ [Concomitant]
     Route: 048
  9. CLOZAPINE [Suspect]
     Indication: SCHIZOPHRENIA
     Route: 048
     Dates: start: 20051012, end: 20100528
  10. ENALAPRIL MALEATE [Concomitant]
     Route: 048
  11. CLONAZEPAM [Concomitant]
     Route: 048
  12. TRICLOSAN [Concomitant]
     Route: 061
  13. LEVOTHYROXINE SODIUM [Concomitant]
     Route: 048
  14. MULTI-VITAMINS [Concomitant]
     Route: 048

REACTIONS (1)
  - GRANULOCYTOPENIA [None]
